FAERS Safety Report 18721666 (Version 2)
Quarter: 2021Q2

REPORT INFORMATION
  Report Type: Other
  Country: CA (occurrence: CA)
  Receive Date: 20210110
  Receipt Date: 20210622
  Transmission Date: 20210717
  Serious: Yes (Death)
  Sender: FDA-Public Use
  Company Number: CA-CELLTRION INC.-2021CA000116

PATIENT

DRUGS (21)
  1. DOXORUBICIN [Suspect]
     Active Substance: DOXORUBICIN
     Indication: INVASIVE DUCTAL BREAST CARCINOMA
     Route: 065
  2. GEMCITABINE HYDROCHLORIDE. [Suspect]
     Active Substance: GEMCITABINE HYDROCHLORIDE
     Indication: CHORIOCARCINOMA
     Route: 065
  3. PEGYLATED LIPOSOMAL DOXORUBICIN HYDROCHLORIDE [Suspect]
     Active Substance: DOXORUBICIN HYDROCHLORIDE
     Indication: CHORIOCARCINOMA
     Dosage: 35.0 MG/M2
     Route: 065
  4. VINCRISTINE SULFATE. [Suspect]
     Active Substance: VINCRISTINE SULFATE
     Indication: METASTATIC CHORIOCARCINOMA
     Route: 065
  5. DACTINOMYCIN [Suspect]
     Active Substance: DACTINOMYCIN
     Indication: CHORIOCARCINOMA
     Dosage: UNK
     Route: 065
  6. PROCYTOX [Suspect]
     Active Substance: CYCLOPHOSPHAMIDE
     Indication: METASTATIC CHORIOCARCINOMA
     Route: 065
  7. ADRIAMYCIN [Suspect]
     Active Substance: DOXORUBICIN HYDROCHLORIDE
     Indication: INVASIVE DUCTAL BREAST CARCINOMA
     Dosage: 35 MG/M2
     Route: 065
  8. ETOPOSIDE. [Suspect]
     Active Substance: ETOPOSIDE
     Indication: METASTATIC NEOPLASM
     Route: 065
  9. GEMCITABINE. [Suspect]
     Active Substance: GEMCITABINE
     Indication: CHORIOCARCINOMA
     Route: 065
  10. METHOTREXATE. [Suspect]
     Active Substance: METHOTREXATE
     Indication: CHORIOCARCINOMA
     Route: 065
  11. TRASTUZUMAB (UNKNOWN) [Suspect]
     Active Substance: TRASTUZUMAB
     Dosage: UNK
     Route: 065
  12. PACLITAXEL. [Suspect]
     Active Substance: PACLITAXEL
     Indication: CHORIOCARCINOMA
     Dosage: UNK
     Route: 042
  13. CYCLOPHOSPHAMIDE. [Suspect]
     Active Substance: CYCLOPHOSPHAMIDE
     Indication: CHORIOCARCINOMA
     Route: 065
  14. ETOPOSIDE. [Suspect]
     Active Substance: ETOPOSIDE
     Indication: CHORIOCARCINOMA
  15. TAXOL [Suspect]
     Active Substance: PACLITAXEL
     Indication: CHORIOCARCINOMA
     Route: 065
  16. TAXOTERE [Suspect]
     Active Substance: DOCETAXEL
     Indication: INVASIVE DUCTAL BREAST CARCINOMA
     Route: 042
  17. TRASTUZUMAB (UNKNOWN) [Suspect]
     Active Substance: TRASTUZUMAB
     Indication: INVASIVE DUCTAL BREAST CARCINOMA
     Dosage: UNK
     Route: 065
  18. COSMEGEN [Suspect]
     Active Substance: DACTINOMYCIN
     Indication: CHORIOCARCINOMA
     Route: 065
  19. CISPLATIN. [Suspect]
     Active Substance: CISPLATIN
     Indication: CHORIOCARCINOMA
     Route: 065
  20. DACTINOMYCIN [Suspect]
     Active Substance: DACTINOMYCIN
     Dosage: UNK
     Route: 065
  21. DOXORUBICIN [Suspect]
     Active Substance: DOXORUBICIN
     Indication: CHORIOCARCINOMA

REACTIONS (3)
  - Product use in unapproved indication [Fatal]
  - Second primary malignancy [Fatal]
  - Acute myeloid leukaemia [Fatal]
